FAERS Safety Report 8094440-X (Version None)
Quarter: 2012Q1

REPORT INFORMATION
  Report Type: 
  Country: None (occurrence: None)
  Receive Date: 20120126
  Receipt Date: 20120117
  Transmission Date: 20120608
  Serious: Yes (Death, Other)
  Sender: FDA-Public Use
  Company Number: US-2012-10056

PATIENT
  Age: 65 Year
  Sex: Male

DRUGS (5)
  1. MESNA [Concomitant]
  2. THIOTEPA [Concomitant]
  3. BUSULFAN [Suspect]
     Indication: BONE MARROW CONDITIONING REGIMEN
     Dosage: 60 MG MILLIGRAM(S), QID, INTRAVENOUS
     Route: 042
     Dates: start: 20111202, end: 20111204
  4. CYCLOPHOSPHAMIDE [Suspect]
     Indication: BONE MARROW CONDITIONING REGIMEN
     Dosage: 4980 MG MILLIGRAM(S), BID, INTRAVENOUS
     Route: 042
     Dates: start: 20111205, end: 20111206
  5. CLONAZEPAM [Concomitant]

REACTIONS (14)
  - DISORIENTATION [None]
  - DIARRHOEA [None]
  - ORTHOSTATIC HYPOTENSION [None]
  - RESPIRATORY DISTRESS [None]
  - VERTIGO [None]
  - HYPERLACTACIDAEMIA [None]
  - PYREXIA [None]
  - SOMNOLENCE [None]
  - PNEUMOCYSTIS JIROVECI PNEUMONIA [None]
  - LUNG DISORDER [None]
  - ABNORMAL BEHAVIOUR [None]
  - VOMITING [None]
  - ACIDOSIS [None]
  - MULTI-ORGAN FAILURE [None]
